FAERS Safety Report 7550345-1 (Version None)
Quarter: 2011Q2

REPORT INFORMATION
  Report Type: 
  Country: None (occurrence: None)
  Receive Date: 20110615
  Receipt Date: 20101130
  Transmission Date: 20111010
  Serious: No
  Sender: FDA-Public Use
  Company Number: A0897593A

PATIENT
  Age: 58 Year
  Sex: Female
  Weight: 60 kg

DRUGS (7)
  1. TRANYLCYPROMINE SULFATE [Suspect]
     Indication: BIPOLAR II DISORDER
     Dosage: 80MG PER DAY
     Route: 048
     Dates: start: 20100201, end: 20100601
  2. PARNATE [Suspect]
     Indication: BIPOLAR II DISORDER
     Dosage: 80MG PER DAY
     Route: 048
     Dates: start: 20060701
  3. SYNTHROID [Concomitant]
  4. LAMOTRIGINE [Concomitant]
     Indication: BIPOLAR II DISORDER
     Dosage: 300MG PER DAY
     Route: 048
  5. AMBIEN [Concomitant]
  6. CYTOMEL [Concomitant]
  7. TRAMADOL HCL [Concomitant]

REACTIONS (4)
  - NAUSEA [None]
  - DEPRESSION [None]
  - MALAISE [None]
  - DRY MOUTH [None]
